FAERS Safety Report 22635188 (Version 1)
Quarter: 2023Q2

REPORT INFORMATION
  Report Type: Report from Study
  Country: US (occurrence: None)
  Receive Date: 20230623
  Receipt Date: 20230623
  Transmission Date: 20230721
  Serious: Yes (Death)
  Sender: FDA-Public Use
  Company Number: 2023A143745

PATIENT
  Age: 30097 Day
  Sex: Female
  Weight: 84.4 kg

DRUGS (21)
  1. CALQUENCE [Suspect]
     Active Substance: ACALABRUTINIB
     Indication: Chronic lymphocytic leukaemia
     Route: 048
  2. ALLOPURINOL [Concomitant]
     Active Substance: ALLOPURINOL
  3. APPLE CIDER VINEGAR [Concomitant]
     Active Substance: APPLE CIDER VINEGAR
  4. ASPIRIN [Concomitant]
     Active Substance: ASPIRIN
  5. CALCIUM [Concomitant]
     Active Substance: CALCIUM
  6. CINNAMON [Concomitant]
     Active Substance: CINNAMON
  7. CIPRO [Concomitant]
     Active Substance: CIPROFLOXACIN HYDROCHLORIDE
  8. DILTIAZEM [Concomitant]
     Active Substance: DILTIAZEM
  9. HERBALS [Concomitant]
     Active Substance: HERBALS
  10. ELIQUIS [Concomitant]
     Active Substance: APIXABAN
  11. FERROUS SULFATE [Concomitant]
     Active Substance: FERROUS SULFATE
  12. GABAPENTIN [Concomitant]
     Active Substance: GABAPENTIN
  13. IMBRUVICA [Concomitant]
     Active Substance: IBRUTINIB
  14. LEVOTHYROXINE [Concomitant]
     Active Substance: LEVOTHYROXINE
  15. LOSARTAN [Concomitant]
     Active Substance: LOSARTAN
  16. METFORMIN [Concomitant]
     Active Substance: METFORMIN HYDROCHLORIDE
  17. METOPROLOL [Concomitant]
     Active Substance: METOPROLOL
  18. TIMOLOL [Concomitant]
     Active Substance: TIMOLOL
  19. TYLENOL [Concomitant]
     Active Substance: ACETAMINOPHEN
  20. VITAMIN B COMPLEX [Concomitant]
     Active Substance: CYANOCOBALAMIN\DEXPANTHENOL\NIACINAMIDE\PYRIDOXINE HYDROCHLORIDE\RIBOFLAVIN 5^-PHOSPHATE SODIUM\THIA
  21. ZINC [Concomitant]
     Active Substance: ZINC

REACTIONS (1)
  - Death [Fatal]

NARRATIVE: CASE EVENT DATE: 20230524
